FAERS Safety Report 22129922 (Version 2)
Quarter: 2023Q1

REPORT INFORMATION
  Report Type: Spontaneous
  Country: US (occurrence: US)
  Receive Date: 20230323
  Receipt Date: 20230331
  Transmission Date: 20230417
  Serious: No
  Sender: FDA-Public Use
  Company Number: US-PFIZER INC-202300120525

PATIENT
  Age: 72 Year
  Sex: Male
  Weight: 80.272 kg

DRUGS (4)
  1. PAXLOVID [Suspect]
     Active Substance: NIRMATRELVIR\RITONAVIR
     Indication: COVID-19 treatment
     Dosage: [PF-07321332 300 MG]/[RITONAVIR 100 MG]; 2X/DAY
     Dates: start: 20230315, end: 202303
  2. AREDS 2 VISUAL ADVANTAGE [Concomitant]
     Dosage: UNK
  3. ATORVASTATIN [Concomitant]
     Active Substance: ATORVASTATIN
     Dosage: UNK
  4. OMEPRAZOLE [Concomitant]
     Active Substance: OMEPRAZOLE
     Dosage: UNK

REACTIONS (9)
  - Tongue erythema [Unknown]
  - Tongue discomfort [Unknown]
  - Glossitis [Unknown]
  - Swollen tongue [Unknown]
  - Glossodynia [Unknown]
  - Night sweats [Unknown]
  - Feeling hot [Unknown]
  - Pyrexia [Unknown]
  - Dysgeusia [Unknown]

NARRATIVE: CASE EVENT DATE: 20230316
